FAERS Safety Report 7490641-X (Version None)
Quarter: 2011Q2

REPORT INFORMATION
  Report Type: 
  Country: None (occurrence: None)
  Receive Date: 20110519
  Receipt Date: 20110506
  Transmission Date: 20111010
  Serious: Yes (Other)
  Sender: FDA-Public Use
  Company Number: US-JNJFOC-20110504513

PATIENT
  Sex: Female

DRUGS (3)
  1. ZYRTEC [Suspect]
     Indication: SEASONAL ALLERGY
     Route: 048
     Dates: start: 20110426, end: 20110429
  2. MULTI-VITAMINS [Concomitant]
     Indication: MEDICAL DIET
     Route: 065
  3. ZYRTEC [Suspect]
     Route: 048

REACTIONS (3)
  - HYPERSENSITIVITY [None]
  - ANXIETY [None]
  - PANIC ATTACK [None]
